FAERS Safety Report 8216316-7 (Version None)
Quarter: 2012Q1

REPORT INFORMATION
  Report Type: 
  Country: None (occurrence: None)
  Receive Date: 20120316
  Receipt Date: 20120308
  Transmission Date: 20120608
  Serious: Yes (Other)
  Sender: FDA-Public Use
  Company Number: PHEH2006US04086

PATIENT
  Sex: Male

DRUGS (15)
  1. FLONASE [Concomitant]
  2. COUMADIN [Concomitant]
  3. ZOMETA [Suspect]
     Route: 042
     Dates: start: 20000101, end: 20040803
  4. THALIDOMIDE [Concomitant]
     Indication: MULTIPLE MYELOMA
     Dosage: 200 MG, QD
  5. SYNTHROID [Concomitant]
  6. AREDIA [Suspect]
  7. VELCADE [Concomitant]
     Indication: MULTIPLE MYELOMA
  8. LASIX [Concomitant]
  9. DECADRON [Concomitant]
     Dosage: 40 MG, UNK
  10. STEROIDS NOS [Concomitant]
     Dates: start: 20040101, end: 20040101
  11. ALPHA LIPOIC ACID [Concomitant]
  12. VITAMIN B6 [Concomitant]
  13. VITAMIN E [Concomitant]
  14. DIOVAN [Concomitant]
  15. ANTIHISTAMINES [Concomitant]
     Indication: SEASONAL ALLERGY

REACTIONS (24)
  - DRY MOUTH [None]
  - OSTEOMYELITIS [None]
  - BONE DISORDER [None]
  - MUSCLE INJURY [None]
  - COSTOCHONDRITIS [None]
  - MORGANELLA INFECTION [None]
  - ORAL CANDIDIASIS [None]
  - TOOTH INFECTION [None]
  - PERIODONTAL DISEASE [None]
  - ERYTHEMA [None]
  - NEOPLASM MALIGNANT [None]
  - SWELLING [None]
  - BLADDER CANCER [None]
  - CORONARY ARTERY DISEASE [None]
  - HYPOTHYROIDISM [None]
  - DEAFNESS [None]
  - OSTEONECROSIS OF JAW [None]
  - PAIN [None]
  - DISCOMFORT [None]
  - SENSITIVITY OF TEETH [None]
  - STOMATITIS [None]
  - DENTAL CARIES [None]
  - GINGIVAL ULCERATION [None]
  - HYPERTENSION [None]
